FAERS Safety Report 20819866 (Version 2)
Quarter: 2022Q3

REPORT INFORMATION
  Report Type: Report from Study
  Country: ZA (occurrence: ZA)
  Receive Date: 20220512
  Receipt Date: 20220808
  Transmission Date: 20221027
  Serious: Yes (Other)
  Sender: FDA-Public Use
  Company Number: ZA-NOVARTISPH-NVSC2022ZA103847

PATIENT
  Age: 39 Year
  Sex: Female

DRUGS (4)
  1. FINGOLIMOD HYDROCHLORIDE [Suspect]
     Active Substance: FINGOLIMOD HYDROCHLORIDE
     Indication: Relapsing-remitting multiple sclerosis
     Dosage: 0.5 MG, QD
     Route: 048
     Dates: start: 20210908
  2. FINGOLIMOD HYDROCHLORIDE [Suspect]
     Active Substance: FINGOLIMOD HYDROCHLORIDE
     Dosage: 0.5 MG, QD
     Route: 048
     Dates: start: 20210909
  3. SOLU-MEDROL [Concomitant]
     Active Substance: METHYLPREDNISOLONE SODIUM SUCCINATE
     Indication: Condition aggravated
     Dosage: UNK
     Route: 065
     Dates: start: 20200217, end: 20200219
  4. SOLU-MEDROL [Concomitant]
     Active Substance: METHYLPREDNISOLONE SODIUM SUCCINATE
     Dosage: 1 G (1G X 3 DAYS)
     Route: 042
     Dates: start: 202205

REACTIONS (11)
  - Optic neuritis [Unknown]
  - Multiple sclerosis relapse [Unknown]
  - Head discomfort [Unknown]
  - Muscle spasms [Unknown]
  - Band sensation [Unknown]
  - Pain in extremity [Unknown]
  - Limb discomfort [Unknown]
  - COVID-19 [Unknown]
  - Palpitations [Unknown]
  - Insomnia [Unknown]
  - Feeling abnormal [Unknown]

NARRATIVE: CASE EVENT DATE: 20220401
